FAERS Safety Report 15602184 (Version 2)
Quarter: 2018Q4

REPORT INFORMATION
  Report Type: Spontaneous
  Country: IT (occurrence: IT)
  Receive Date: 20181109
  Receipt Date: 20181121
  Transmission Date: 20190205
  Serious: Yes (Hospitalization, Disabling, Other)
  Sender: FDA-Public Use
  Company Number: US-SA-2018SA303715

PATIENT
  Age: 35 Year
  Sex: Female
  Weight: 18 kg

DRUGS (2)
  1. MYOZYME [Suspect]
     Active Substance: ALGLUCOSIDASE ALFA
     Indication: GLYCOGEN STORAGE DISEASE TYPE II
     Dosage: 20 MG/KG, QW
     Route: 041
     Dates: start: 20151110
  2. MYOZYME [Suspect]
     Active Substance: ALGLUCOSIDASE ALFA
     Dosage: 40 UNK
     Route: 041

REACTIONS (11)
  - Catheter site infection [Recovered/Resolved]
  - Gait disturbance [Not Recovered/Not Resolved]
  - Catheter site infection [Recovered/Resolved]
  - Pyrexia [Recovered/Resolved]
  - Protein C increased [Recovered/Resolved]
  - Pseudomonas infection [Recovered/Resolved]
  - Interleukin level increased [Recovered/Resolved]
  - Anuria [Recovered/Resolved]
  - Polymerase chain reaction positive [Recovered/Resolved]
  - Neutropenia [Recovered/Resolved]
  - Muscular weakness [Not Recovered/Not Resolved]

NARRATIVE: CASE EVENT DATE: 20170320
